FAERS Safety Report 8041085-3 (Version None)
Quarter: 2012Q1

REPORT INFORMATION
  Report Type: 
  Country: None (occurrence: None)
  Receive Date: 20120109
  Receipt Date: 20120104
  Transmission Date: 20120608
  Serious: Yes (Hospitalization, Other)
  Sender: FDA-Public Use
  Company Number: 2011SP019413

PATIENT
  Age: 31 Year
  Sex: Female
  Weight: 68.0396 kg

DRUGS (1)
  1. NUVARING [Suspect]
     Indication: CONTRACEPTION
     Dates: start: 20060101, end: 20090509

REACTIONS (25)
  - ANTIPHOSPHOLIPID ANTIBODIES POSITIVE [None]
  - SINUS TACHYCARDIA [None]
  - URINARY TRACT INFECTION [None]
  - STAPHYLOCOCCAL INFECTION [None]
  - HAEMOPTYSIS [None]
  - VIRAL INFECTION [None]
  - MATERNAL EXPOSURE DURING PREGNANCY [None]
  - ANXIETY [None]
  - PHARYNGITIS [None]
  - PULMONARY EMBOLISM [None]
  - BACK PAIN [None]
  - PREGNANCY WITH CONTRACEPTIVE DEVICE [None]
  - DEEP VEIN THROMBOSIS [None]
  - HEART RATE DECREASED [None]
  - WEIGHT DECREASED [None]
  - DRUG ABUSE [None]
  - MAJOR DEPRESSION [None]
  - MENSTRUAL DISORDER [None]
  - SKIN LESION [None]
  - PSYCHOTIC DISORDER [None]
  - VAGINAL HAEMORRHAGE [None]
  - NIGHT SWEATS [None]
  - HYPERCOAGULATION [None]
  - FEMALE STERILISATION [None]
  - STRESS [None]
